FAERS Safety Report 20503131 (Version 1)
Quarter: 2022Q1

REPORT INFORMATION
  Report Type: Spontaneous
  Country: US (occurrence: None)
  Receive Date: 20220222
  Receipt Date: 20220222
  Transmission Date: 20220423
  Serious: Yes (Hospitalization, Other)
  Sender: FDA-Public Use
  Company Number: 2022A074520

PATIENT
  Sex: Male

DRUGS (2)
  1. EVUSHELD [Suspect]
     Active Substance: CILGAVIMAB\TIXAGEVIMAB
     Indication: COVID-19
     Dosage: 300.0MG ONCE/SINGLE ADMINISTRATION
     Route: 030
  2. REMDESIVIR [Concomitant]
     Active Substance: REMDESIVIR

REACTIONS (1)
  - COVID-19 [Recovering/Resolving]
